FAERS Safety Report 7536188-3 (Version None)
Quarter: 2011Q2

REPORT INFORMATION
  Report Type: 
  Country: None (occurrence: None)
  Receive Date: 20110609
  Receipt Date: 20110602
  Transmission Date: 20111010
  Serious: Yes (Hospitalization)
  Sender: FDA-Public Use
  Company Number: FR-PFIZER INC-FR-WYE-H17823310

PATIENT
  Sex: Female

DRUGS (13)
  1. NEXIUM [Concomitant]
     Route: 065
  2. ORGARAN [Suspect]
     Dosage: UNKNOWN
     Route: 058
     Dates: start: 20100818, end: 20100820
  3. MIDAZOLAM HYDROCHLORIDE [Suspect]
     Dosage: UNKNOWN
     Route: 042
     Dates: start: 20100818, end: 20100822
  4. AUGMENTIN '125' [Suspect]
     Dosage: UNKNOWN DAILY DOSE
     Route: 042
     Dates: start: 20100818, end: 20100823
  5. TRANXENE [Suspect]
     Dosage: UNKNOWN
     Route: 042
     Dates: start: 20100822, end: 20100825
  6. SOLU-MEDROL [Suspect]
     Dosage: UNKNOWN DAILY DOSE
     Route: 042
     Dates: start: 20100820, end: 20100825
  7. PANTOPRAZOLE SODIUM [Suspect]
     Dosage: UNKNOWN DAILY DOSE
     Route: 042
     Dates: start: 20100818, end: 20100824
  8. DIPRIVAN [Suspect]
     Dosage: UNKNOWN DAILY DOSE
     Route: 042
     Dates: start: 20100822, end: 20100823
  9. ENOXAPARIN SODIUM [Suspect]
     Dosage: UNKNOWN
     Route: 058
     Dates: start: 20100820, end: 20100826
  10. PERINDOPRIL ERBUMINE [Concomitant]
     Route: 065
  11. LASIX [Suspect]
     Dosage: UNKNOWN DAILY DOSE
     Route: 042
     Dates: start: 20100820
  12. CLAFORAN [Suspect]
     Dosage: UNKNOWN DAILY DOSE
     Route: 042
     Dates: start: 20100823, end: 20100825
  13. FENTANYL [Suspect]
     Dosage: UNKNOWN
     Route: 042
     Dates: start: 20100819, end: 20100822

REACTIONS (3)
  - ASPARTATE AMINOTRANSFERASE INCREASED [None]
  - PANCREATITIS [None]
  - ALANINE AMINOTRANSFERASE INCREASED [None]
